FAERS Safety Report 14208555 (Version 3)
Quarter: 2018Q1

REPORT INFORMATION
  Report Type: Spontaneous
  Country: DE (occurrence: DE)
  Receive Date: 20171121
  Receipt Date: 20180110
  Transmission Date: 20180508
  Serious: Yes (Hospitalization, Disabling)
  Sender: FDA-Public Use
  Company Number: GXKR2017DE005827

PATIENT
  Age: 57 Year
  Sex: Male
  Weight: 88 kg

DRUGS (7)
  1. VALPROIC ACID. [Suspect]
     Active Substance: VALPROIC ACID
     Indication: BIPOLAR DISORDER
     Dosage: 900 MG, TWICE DAILY
     Route: 065
  2. IBUPROFEN. [Concomitant]
     Active Substance: IBUPROFEN
     Indication: PAIN
     Dosage: 600 MG, QID
     Route: 065
  3. XARELTO [Concomitant]
     Active Substance: RIVAROXABAN
     Indication: THROMBOSIS PROPHYLAXIS
     Dosage: 10 MG, QD
     Route: 065
     Dates: start: 20160531
  4. CEFAZOLIN [Concomitant]
     Active Substance: CEFAZOLIN
     Indication: ANTIBIOTIC PROPHYLAXIS
     Dosage: 2 G, UNK
     Route: 065
     Dates: start: 20160531
  5. NOVAMINSULFON [Concomitant]
     Active Substance: METAMIZOLE
     Indication: PAIN
     Dosage: 500 MG, TID (ON A REGULAR BASIS)
     Route: 065
  6. ASPIRIN. [Concomitant]
     Active Substance: ASPIRIN
     Indication: PRODUCT USED FOR UNKNOWN INDICATION
     Route: 065
  7. CIPRALEX [Suspect]
     Active Substance: ESCITALOPRAM OXALATE
     Indication: DEPRESSION
     Dosage: 5 MG, ONCE DAILY
     Route: 065
     Dates: end: 20160526

REACTIONS (11)
  - Haematoma [Unknown]
  - Muscle disorder [Unknown]
  - Haemorrhage [Unknown]
  - Nerve injury [Unknown]
  - Chest pain [Not Recovered/Not Resolved]
  - Diarrhoea [Unknown]
  - Back pain [Unknown]
  - Staphylococcal infection [Unknown]
  - Gait disturbance [Not Recovered/Not Resolved]
  - Walking aid user [Not Recovered/Not Resolved]
  - Myalgia [Unknown]
